FAERS Safety Report 17283372 (Version 1)
Quarter: 2020Q1

REPORT INFORMATION
  Report Type: Spontaneous
  Country: DE (occurrence: DE)
  Receive Date: 20200117
  Receipt Date: 20200117
  Transmission Date: 20200409
  Serious: Yes (Other)
  Sender: FDA-Public Use
  Company Number: DE-PFIZER INC-2020018431

PATIENT
  Age: 36 Year
  Sex: Female

DRUGS (5)
  1. MILNACIPRAN [Concomitant]
     Active Substance: MILNACIPRAN
     Dosage: 75 MG, DAILY (50-25-0 MG)
     Dates: start: 20190328
  2. SERTRALINE HCL [Suspect]
     Active Substance: SERTRALINE HYDROCHLORIDE
     Dosage: 100 MG, 1X/DAY
     Dates: start: 20190328
  3. SERTRALINE HCL [Suspect]
     Active Substance: SERTRALINE HYDROCHLORIDE
     Dosage: 150 MG, 1X/DAY
     Dates: start: 20190117, end: 20190327
  4. MILNACIPRAN [Concomitant]
     Active Substance: MILNACIPRAN
     Dosage: 50 MG, 1X/DAY (50MG-0-0)
     Dates: start: 20190114, end: 20190327
  5. SERTRALINE HCL [Suspect]
     Active Substance: SERTRALINE HYDROCHLORIDE
     Dosage: 100 MG, 1X/DAY (100MG-0-0)
     Dates: start: 20190114, end: 20190117

REACTIONS (1)
  - Persistent genital arousal disorder [Recovering/Resolving]

NARRATIVE: CASE EVENT DATE: 20190115
